FAERS Safety Report 8922574 (Version 3)
Quarter: 2012Q4

REPORT INFORMATION
  Report Type: Report from Study
  Country: CA (occurrence: CA)
  Receive Date: 20121123
  Receipt Date: 20121127
  Transmission Date: 20130627
  Serious: Yes (Death, Other)
  Sender: FDA-Public Use
  Company Number: CA-ROCHE-CID000000002222147

PATIENT
  Age: 87 Year
  Sex: Male
  Weight: 59.02 kg

DRUGS (5)
  1. RITUXIMAB [Suspect]
     Indication: IDIOPATHIC THROMBOCYTOPENIC PURPURA
     Dosage: last infusion: 13/Nov/2012
     Route: 042
     Dates: start: 20121105
  2. COVERSYL [Concomitant]
     Route: 065
  3. CYKLOKAPRON [Concomitant]
     Route: 065
  4. CHOLECALCIFEROL [Concomitant]
     Route: 065
  5. PREDNISONE [Concomitant]

REACTIONS (7)
  - Haemoptysis [Unknown]
  - Cough [Unknown]
  - Dyspnoea [Recovered/Resolved]
  - Eye swelling [Not Recovered/Not Resolved]
  - Oedema peripheral [Not Recovered/Not Resolved]
  - Arthralgia [Not Recovered/Not Resolved]
  - Heart rate decreased [Fatal]
